FAERS Safety Report 8170149-9 (Version None)
Quarter: 2012Q1

REPORT INFORMATION
  Report Type: 
  Country: None (occurrence: None)
  Receive Date: 20120228
  Receipt Date: 20120221
  Transmission Date: 20120608
  Serious: No
  Sender: FDA-Public Use
  Company Number: PHHY2011CA55707

PATIENT
  Sex: Female

DRUGS (3)
  1. GILENYA [Suspect]
     Indication: RELAPSING-REMITTING MULTIPLE SCLEROSIS
     Dosage: 0.5 MG, UNK
     Route: 048
     Dates: start: 20110620
  2. CYMBALTA [Concomitant]
  3. MODAFINIL [Concomitant]

REACTIONS (4)
  - FEELING ABNORMAL [None]
  - ASTHENIA [None]
  - NAUSEA [None]
  - PSORIASIS [None]
